FAERS Safety Report 5270538-6 (Version None)
Quarter: 2007Q1

REPORT INFORMATION
  Report Type: 
  Country: None (occurrence: None)
  Receive Date: 20070315
  Receipt Date: 20070302
  Transmission Date: 20070707
  Serious: Yes (Other)
  Sender: FDA-Public Use
  Company Number: 2007SP004193

PATIENT
  Age: 27 Year
  Sex: Female

DRUGS (2)
  1. RIBAVIRIN [Suspect]
     Indication: HEPATITIS C
     Dosage: PO
     Route: 048
     Dates: start: 20070201
  2. ACYCLOVIR (CON.) [Concomitant]

REACTIONS (3)
  - DIZZINESS [None]
  - HAEMATEMESIS [None]
  - HEADACHE [None]
